FAERS Safety Report 11632125 (Version 1)
Quarter: 2015Q4

REPORT INFORMATION
  Report Type: Spontaneous
  Country: US (occurrence: US)
  Receive Date: 20151015
  Receipt Date: 20151015
  Transmission Date: 20160304
  Serious: No
  Sender: FDA-Public Use
  Company Number: US-MYLANLABS-2015M1031891

PATIENT
  Age: 88 Year
  Sex: Female
  Weight: 68.27 kg

DRUGS (2)
  1. CALCITONIN SALMON. [Suspect]
     Active Substance: CALCITONIN SALMON
     Indication: BONE DISORDER
     Dosage: 200 IU, QD
     Route: 045
     Dates: start: 201404
  2. DONEPEZIL. [Suspect]
     Active Substance: DONEPEZIL
     Indication: MEMORY IMPAIRMENT
     Dosage: 10 MG, QD

REACTIONS (7)
  - Weight decreased [Unknown]
  - Rash [Not Recovered/Not Resolved]
  - Nasal dryness [Unknown]
  - Headache [Not Recovered/Not Resolved]
  - Abnormal dreams [Not Recovered/Not Resolved]
  - Pain in extremity [Not Recovered/Not Resolved]
  - Disturbance in attention [Not Recovered/Not Resolved]
